FAERS Safety Report 23940913 (Version 1)
Quarter: 2024Q2

REPORT INFORMATION
  Report Type: Report from Study
  Country: US (occurrence: US)
  Receive Date: 20240605
  Receipt Date: 20240605
  Transmission Date: 20240716
  Serious: Yes (Hospitalization)
  Sender: FDA-Public Use
  Company Number: US-Stemline Therapeutics, Inc.-2024ST003371

PATIENT
  Age: 65 Year

DRUGS (1)
  1. ORSERDU [Suspect]
     Active Substance: ELACESTRANT
     Indication: Product used for unknown indication
     Dosage: 345MG ONCE DAILY
     Route: 048
     Dates: start: 20240305

REACTIONS (6)
  - Hypocalcaemia [Unknown]
  - Electrolyte imbalance [Unknown]
  - Weight decreased [Unknown]
  - Illness [Recovered/Resolved]
  - Diarrhoea [Unknown]
  - Vomiting [Unknown]
